FAERS Safety Report 4472003-2 (Version None)
Quarter: 2004Q4

REPORT INFORMATION
  Report Type: 
  Country: None (occurrence: None)
  Receive Date: 20041007
  Receipt Date: 20040927
  Transmission Date: 20050328
  Serious: Yes (Hospitalization)
  Sender: FDA-Public Use
  Company Number: 2004PK01599

PATIENT
  Age: 79 Year
  Sex: Male
  Weight: 70 kg

DRUGS (11)
  1. IRESSA [Suspect]
     Indication: PROSTATE CANCER METASTATIC
     Dosage: 250 MG DAILY PO
     Route: 048
     Dates: start: 20040511, end: 20040612
  2. IRESSA [Suspect]
     Indication: PROSTATE CANCER METASTATIC
     Dosage: 250 MG DAILY PO
     Route: 048
     Dates: start: 20040630, end: 20040715
  3. DOCETAXEL [Suspect]
     Indication: PROSTATE CANCER METASTATIC
     Dosage: 35 MG/M2 WEEK IV
     Route: 042
     Dates: start: 20040511, end: 20040511
  4. DOCETAXEL [Suspect]
     Indication: PROSTATE CANCER METASTATIC
     Dosage: 35 MG/M2 WEEK IV
     Route: 042
     Dates: start: 20040518, end: 20040518
  5. DOCETAXEL [Suspect]
     Indication: PROSTATE CANCER METASTATIC
     Dosage: 35 MG/M2 WEEK IV
     Route: 042
     Dates: start: 20040525, end: 20040525
  6. DOCETAXEL [Suspect]
     Indication: PROSTATE CANCER METASTATIC
     Dosage: 35 MG/M2 WEEK IV
     Route: 042
     Dates: start: 20040609, end: 20040609
  7. DOCETAXEL [Suspect]
     Indication: PROSTATE CANCER METASTATIC
     Dosage: 35 MG/M2 WEEK IV
     Route: 042
     Dates: start: 20040616, end: 20040616
  8. DOCETAXEL [Suspect]
     Indication: PROSTATE CANCER METASTATIC
     Dosage: 35 MG/M2 WEEK IV
     Route: 042
     Dates: start: 20040623, end: 20040623
  9. ZOLADEX [Concomitant]
  10. DEXAMETHASON [Concomitant]
  11. MOTILIUM [Concomitant]

REACTIONS (2)
  - FOLLICULITIS [None]
  - SUBCUTANEOUS ABSCESS [None]
